FAERS Safety Report 6317657-0 (Version None)
Quarter: 2009Q3

REPORT INFORMATION
  Report Type: 
  Country: None (occurrence: None)
  Receive Date: 20090821
  Receipt Date: 20071001
  Transmission Date: 20100115
  Serious: Yes (Other)
  Sender: FDA-Public Use
  Company Number: US-ASTRAZENECA-2006UW23602

PATIENT
  Age: 39 Year
  Sex: Female
  Weight: 111.6 kg

DRUGS (11)
  1. SEROQUEL [Suspect]
     Indication: BIPOLAR DISORDER
     Dosage: 600 MG TO 1000 MG
     Route: 048
     Dates: start: 19980101
  2. SEROQUEL [Suspect]
     Indication: SCHIZOPHRENIA
     Dosage: 600 MG TO 1000 MG
     Route: 048
     Dates: start: 19980101
  3. SEROQUEL [Suspect]
     Indication: DEPRESSION
     Dosage: 600 MG TO 1000 MG
     Route: 048
     Dates: start: 19980101
  4. SEROQUEL [Suspect]
     Dosage: 200-800 MG
     Route: 048
     Dates: start: 20020419
  5. SEROQUEL [Suspect]
     Dosage: 200-800 MG
     Route: 048
     Dates: start: 20020419
  6. SEROQUEL [Suspect]
     Dosage: 200-800 MG
     Route: 048
     Dates: start: 20020419
  7. RISPERDAL [Concomitant]
     Dates: start: 19960101, end: 19980101
  8. ZYPREXA [Concomitant]
     Dates: start: 19960101, end: 19980101
  9. PAXIL [Concomitant]
     Route: 048
     Dates: start: 20010220
  10. TRAZODONE HCL [Concomitant]
     Route: 048
     Dates: start: 20020117
  11. HYDROCHLOROTHIAZIDE [Concomitant]
     Dates: start: 20020408

REACTIONS (9)
  - BLOOD CHOLESTEROL INCREASED [None]
  - DIABETES MELLITUS [None]
  - DIABETIC GASTROPARESIS [None]
  - MUSCULAR WEAKNESS [None]
  - PANCREATITIS [None]
  - PANCREATITIS ACUTE [None]
  - POOR PERIPHERAL CIRCULATION [None]
  - TYPE 1 DIABETES MELLITUS [None]
  - TYPE 2 DIABETES MELLITUS [None]
